FAERS Safety Report 10034478 (Version 1)
Quarter: 2014Q1

REPORT INFORMATION
  Report Type: Spontaneous
  Country: FR (occurrence: FR)
  Receive Date: 20140325
  Receipt Date: 20140325
  Transmission Date: 20141002
  Serious: Yes (Life-Threatening)
  Sender: FDA-Public Use
  Company Number: FR-ABBVIE-14P-056-1216417-00

PATIENT
  Age: 76 Year
  Sex: Female

DRUGS (3)
  1. TARKA [Suspect]
     Indication: PRODUCT USED FOR UNKNOWN INDICATION
     Dates: start: 20131119, end: 20131122
  2. ISOPTINE [Interacting]
     Indication: HYPERTENSION
     Route: 048
     Dates: start: 20131122, end: 20131124
  3. GRAPEFRUIT JUICE [Interacting]
     Indication: PRODUCT USED FOR UNKNOWN INDICATION
     Route: 048

REACTIONS (9)
  - Hepatocellular injury [Recovered/Resolved]
  - Hyperkalaemia [Recovered/Resolved]
  - Hypotension [Recovered/Resolved]
  - Bradycardia [Recovered/Resolved]
  - Drug interaction [Unknown]
  - Cyanosis [Unknown]
  - Sinus arrhythmia [Unknown]
  - Ventricular extrasystoles [Unknown]
  - Electrocardiogram T wave abnormal [Unknown]
